FAERS Safety Report 22336932 (Version 1)
Quarter: 2023Q2

REPORT INFORMATION
  Report Type: Spontaneous
  Country: US (occurrence: US)
  Receive Date: 20230518
  Receipt Date: 20230518
  Transmission Date: 20230721
  Serious: No
  Sender: FDA-Public Use
  Company Number: US-AUROBINDO-AUR-APL-2022-021740

PATIENT
  Age: 54 Year
  Sex: Male
  Weight: 91 kg

DRUGS (24)
  1. AMITRIPTYLINE HYDROCHLORIDE [Suspect]
     Active Substance: AMITRIPTYLINE HYDROCHLORIDE
     Indication: Migraine
     Dosage: UNK
     Route: 065
  2. TOPIRAMATE [Suspect]
     Active Substance: TOPIRAMATE
     Indication: Migraine
     Dosage: UNK
     Route: 065
  3. AIMOVIG [Suspect]
     Active Substance: ERENUMAB-AOOE
     Indication: Migraine
     Route: 065
  4. EMGALITY [Suspect]
     Active Substance: GALCANEZUMAB-GNLM
     Indication: Migraine
     Dosage: UNK
     Route: 065
  5. MAGNESIUM [Suspect]
     Active Substance: MAGNESIUM
     Indication: Migraine
     Dosage: UNK
     Route: 065
  6. DIHYDROERGOTAMINE MESYLATE [Suspect]
     Active Substance: DIHYDROERGOTAMINE MESYLATE
     Indication: Migraine
     Dosage: UNK
     Route: 065
  7. OMEPRAZOLE [Concomitant]
     Active Substance: OMEPRAZOLE
     Indication: Product used for unknown indication
     Dosage: UNK
     Route: 065
  8. LUTEIN [Concomitant]
     Active Substance: LUTEIN
     Indication: Product used for unknown indication
     Dosage: UNK
     Route: 065
  9. XANTHINE [Concomitant]
     Active Substance: XANTHINE
     Indication: Product used for unknown indication
     Dosage: UNK
     Route: 065
  10. NURTEC ODT [Concomitant]
     Active Substance: RIMEGEPANT SULFATE
     Indication: Migraine prophylaxis
     Dosage: 75 MILLIGRAM, EVERY OTHER DAY
     Route: 048
     Dates: start: 20220401
  11. FISH OIL [Concomitant]
     Active Substance: FISH OIL
     Indication: Product used for unknown indication
     Dosage: 1200 MILLIGRAM
     Route: 065
  12. CARNITINE [Concomitant]
     Active Substance: CARNITINE
     Indication: Product used for unknown indication
     Dosage: 855 MILLIGRAM, ONCE A DAY
     Route: 065
  13. PROBIOTIC COMPLEX [Concomitant]
     Indication: Product used for unknown indication
     Dosage: UNK
     Route: 065
  14. LOVASTATIN [Concomitant]
     Active Substance: LOVASTATIN
     Indication: Product used for unknown indication
     Dosage: UNK
     Route: 065
  15. COENZYME Q10 [Concomitant]
     Active Substance: DIETARY SUPPLEMENT\UBIDECARENONE
     Indication: Product used for unknown indication
     Dosage: UNK
     Route: 065
  16. PROPRANOLOL [Concomitant]
     Active Substance: PROPRANOLOL HYDROCHLORIDE
     Indication: Product used for unknown indication
     Dosage: UNK
     Route: 065
  17. AMITRIPTYLINE [Concomitant]
     Active Substance: AMITRIPTYLINE
     Indication: Migraine
     Dosage: UNK
     Route: 065
  18. MIRABEGRON [Concomitant]
     Active Substance: MIRABEGRON
     Indication: Product used for unknown indication
     Dosage: UNK
     Route: 065
  19. TAMSULOSIN [Concomitant]
     Active Substance: TAMSULOSIN
     Indication: Product used for unknown indication
     Dosage: UNK
     Route: 065
  20. ZONISAMIDE [Concomitant]
     Active Substance: ZONISAMIDE
     Indication: Product used for unknown indication
     Dosage: UNK
     Route: 065
  21. VITAMIN B12 [Concomitant]
     Active Substance: CYANOCOBALAMIN
     Indication: Product used for unknown indication
     Dosage: UNK
     Route: 065
  22. CODEINE [Concomitant]
     Active Substance: CODEINE
     Indication: Product used for unknown indication
     Dosage: UNK
     Route: 065
  23. ADVIL [Concomitant]
     Active Substance: IBUPROFEN
     Indication: Product used for unknown indication
     Dosage: UNK
     Route: 065
  24. ADVIL PM (DIPHENHYDRAMINE CITRATE\IBUPROFEN) [Concomitant]
     Active Substance: DIPHENHYDRAMINE CITRATE\IBUPROFEN
     Indication: Product used for unknown indication
     Dosage: UNK
     Route: 065

REACTIONS (1)
  - Drug ineffective [Unknown]
